FAERS Safety Report 12379297 (Version 2)
Quarter: 2017Q2

REPORT INFORMATION
  Report Type: Report from Study
  Country: CA (occurrence: CA)
  Receive Date: 20160517
  Receipt Date: 20170420
  Transmission Date: 20170830
  Serious: Yes (Hospitalization, Other)
  Sender: FDA-Public Use
  Company Number: CA-JNJFOC-20160514110

PATIENT
  Age: 72 Year
  Sex: Female
  Weight: 56.6 kg

DRUGS (1)
  1. REMICADE [Suspect]
     Active Substance: INFLIXIMAB
     Indication: RHEUMATOID ARTHRITIS
     Dosage: THERAPY DURATION 120 MINUTES
     Route: 042
     Dates: start: 20080220

REACTIONS (6)
  - Haemorrhage [Unknown]
  - Skin mass [Recovering/Resolving]
  - Localised infection [Unknown]
  - Localised infection [Recovering/Resolving]
  - Haemoglobin decreased [Recovering/Resolving]
  - Loss of consciousness [Unknown]

NARRATIVE: CASE EVENT DATE: 20170224
